FAERS Safety Report 7211056-5 (Version None)
Quarter: 2011Q1

REPORT INFORMATION
  Report Type: 
  Country: None (occurrence: None)
  Receive Date: 20110105
  Receipt Date: 20101215
  Transmission Date: 20110831
  Serious: Yes (Other)
  Sender: FDA-Public Use
  Company Number: JP-SHIRE-ALL1-2010-06602

PATIENT
  Age: 61 Year
  Sex: Female

DRUGS (3)
  1. CALTAN [Concomitant]
     Indication: HYPOCALCAEMIA
     Dosage: 1500 MG, AS REQ'D
     Route: 048
  2. CALTAN [Concomitant]
     Dosage: 3 G, AS REQ'D
     Route: 048
  3. FOSRENOL [Suspect]
     Indication: HYPERPHOSPHATAEMIA
     Dosage: 250 MG, UNKNOWN, TOTAL DAILY DOSE
     Route: 048
     Dates: start: 20100903

REACTIONS (1)
  - HYPOCALCAEMIA [None]
